FAERS Safety Report 8662648 (Version 2)
Quarter: 2012Q4

REPORT INFORMATION
  Report Type: 
  Country: US (occurrence: US)
  Receive Date: 20120712
  Receipt Date: 20120918
  Transmission Date: 20130627
  Serious: No
  Sender: FDA-Public Use
  Company Number: AE-ASTRAZENECA-2012SE45324

PATIENT
  Age: 70 Year
  Sex: Female
  Weight: 69.9 kg

DRUGS (9)
  1. NEXIUM [Suspect]
     Indication: GASTROOESOPHAGEAL REFLUX DISEASE
     Route: 048
     Dates: start: 2002
  2. NEXIUM [Suspect]
     Indication: HIATUS HERNIA
     Route: 048
     Dates: start: 2002
  3. ZESTRIL [Suspect]
     Indication: BLOOD PRESSURE
     Route: 048
  4. PREVACID [Concomitant]
  5. BONIVA [Concomitant]
     Indication: OSTEOPOROSIS
  6. FOSOMAX [Concomitant]
     Indication: OSTEOPOROSIS
  7. SYNTHROID [Concomitant]
     Indication: THYROID DISORDER
  8. BABY ASPIRIN [Concomitant]
  9. CLONAZEPAM [Concomitant]
     Indication: SLEEP DISORDER

REACTIONS (2)
  - Gastrooesophageal reflux disease [Unknown]
  - Intentional drug misuse [Unknown]
